FAERS Safety Report 10220803 (Version 1)
Quarter: 2014Q2

REPORT INFORMATION
  Report Type: Spontaneous
  Country: BR (occurrence: None)
  Receive Date: 20140604
  Receipt Date: 20140604
  Transmission Date: 20141212
  Serious: Yes (Other)
  Sender: FDA-Public Use
  Company Number: COL_16069_2014

PATIENT
  Sex: Female

DRUGS (2)
  1. COLGATE LUMINOUS WHITE TOOTHPASTE [Suspect]
     Indication: PRODUCT USED FOR UNKNOWN INDICATION
     Dosage: SMALL AMOUNT
     Route: 048
     Dates: start: 20140520, end: 20140520
  2. UNSPECIFIED ARTHRITIS MEDICATION [Concomitant]

REACTIONS (5)
  - Hypersensitivity [None]
  - Obstructive airways disorder [None]
  - Tongue disorder [None]
  - Dysphagia [None]
  - Hypoaesthesia oral [None]
